FAERS Safety Report 6596778-1 (Version None)
Quarter: 2010Q1

REPORT INFORMATION
  Report Type: 
  Country: None (occurrence: None)
  Receive Date: 20100222
  Receipt Date: 20100222
  Transmission Date: 20100710
  Serious: No
  Sender: FDA-Public Use
  Company Number: None

PATIENT
  Age: 76 Year
  Sex: Female

DRUGS (1)
  1. RAPAFLO [Suspect]
     Indication: URINARY TRACT DISORDER
     Dosage: 8 MG 1 DAILY

REACTIONS (4)
  - DYSPHAGIA [None]
  - EAR CONGESTION [None]
  - NASAL CONGESTION [None]
  - THROAT TIGHTNESS [None]
